FAERS Safety Report 19295086 (Version 3)
Quarter: 2021Q3

REPORT INFORMATION
  Report Type: Spontaneous
  Country: NL (occurrence: DE)
  Receive Date: 20210524
  Receipt Date: 20210817
  Transmission Date: 20211014
  Serious: Yes (Other)
  Sender: FDA-Public Use
  Company Number: DE-FRESENIUS KABI-FK202102522

PATIENT
  Age: 63 Year
  Sex: Female
  Weight: 107 kg

DRUGS (10)
  1. PACLITAXEL (MANUFACTURER UNKNOWN) [Suspect]
     Active Substance: PACLITAXEL
     Indication: INTRADUCTAL PROLIFERATIVE BREAST LESION
     Dosage: 12 CYCLES
     Route: 065
     Dates: start: 201901, end: 2019
  2. CYCLOPHOSPHAMIDE. [Suspect]
     Active Substance: CYCLOPHOSPHAMIDE
     Indication: INTRADUCTAL PROLIFERATIVE BREAST LESION
     Dosage: 4 CYCLES
     Route: 065
     Dates: start: 2019, end: 201907
  3. PERTUZUMAB. [Suspect]
     Active Substance: PERTUZUMAB
     Indication: BREAST CANCER
     Dosage: WITH HERCEPTIN, 18 CYCLES IN TOTAL?PHARMACEUTICAL DOSE FORM (FREE TEXT): INFUSION, SOLUTION
     Route: 042
     Dates: start: 20190731, end: 20200812
  4. EPIRUBICIN [Suspect]
     Active Substance: EPIRUBICIN
     Indication: INTRADUCTAL PROLIFERATIVE BREAST LESION
     Dosage: 4 CYCLES
     Route: 065
     Dates: start: 2019, end: 201907
  5. PERTUZUMAB. [Suspect]
     Active Substance: PERTUZUMAB
     Indication: INTRADUCTAL PROLIFERATIVE BREAST LESION
     Dosage: WITH HERCEPTIN, 18 CYCLES IN TOTAL?PHARMACEUTICAL DOSE FORM (FREE TEXT): INFUSION, SOLUTION
     Route: 065
     Dates: start: 2019, end: 202008
  6. TRASTUZUMAB. [Suspect]
     Active Substance: TRASTUZUMAB
     Indication: BREAST CANCER
     Dosage: WITH PERJETA, 18 CYCLES IN TOTAL
     Route: 042
     Dates: start: 20190731, end: 20200812
  7. TRASTUZUMAB. [Suspect]
     Active Substance: TRASTUZUMAB
     Dosage: WITH PERJETA, 18 CYCLES IN TOTAL
     Route: 041
     Dates: start: 20190731, end: 20200812
  8. CORTISONE [Concomitant]
     Active Substance: CORTISONE
     Indication: PRODUCT USED FOR UNKNOWN INDICATION
     Route: 065
  9. TRASTUZUMAB. [Suspect]
     Active Substance: TRASTUZUMAB
     Indication: INTRADUCTAL PROLIFERATIVE BREAST LESION
     Dosage: WITH PERJETA, 18 CYCLES IN TOTAL
     Route: 065
     Dates: start: 2019, end: 202008
  10. ETHACRIDINE LACTATE [Concomitant]
     Active Substance: ETHACRIDINE LACTATE
     Indication: PRODUCT USED FOR UNKNOWN INDICATION
     Route: 065

REACTIONS (11)
  - Cardiac failure [Recovering/Resolving]
  - Paronychia [Recovered/Resolved]
  - Cardiac disorder [Unknown]
  - Inflammation [Recovering/Resolving]
  - Nail bed bleeding [Recovering/Resolving]
  - Nail dystrophy [Recovered/Resolved]
  - Nail disorder [Recovering/Resolving]
  - Onychoclasis [Recovering/Resolving]
  - Nail bed inflammation [Recovering/Resolving]
  - Skin exfoliation [Recovering/Resolving]
  - Infection [Not Recovered/Not Resolved]

NARRATIVE: CASE EVENT DATE: 2020
